FAERS Safety Report 12832932 (Version 2)
Quarter: 2016Q4

REPORT INFORMATION
  Report Type: Spontaneous
  Country: JP (occurrence: JP)
  Receive Date: 20161010
  Receipt Date: 20161114
  Transmission Date: 20170207
  Serious: Yes (Hospitalization)
  Sender: FDA-Public Use
  Company Number: JP-BAYER-2016-189787

PATIENT
  Age: 83 Year
  Sex: Male

DRUGS (2)
  1. CILOSTAZOL. [Interacting]
     Active Substance: CILOSTAZOL
     Indication: ANGINA PECTORIS
     Dosage: UNK
     Route: 048
  2. BAYASPIRIN [Suspect]
     Active Substance: ASPIRIN
     Indication: ANGINA PECTORIS
     Dosage: UNK
     Route: 048

REACTIONS (4)
  - Haemobilia [Recovered/Resolved]
  - Labelled drug-drug interaction medication error [Recovered/Resolved]
  - Drug administration error [Recovered/Resolved]
  - Vascular pseudoaneurysm ruptured [Recovered/Resolved]

NARRATIVE: CASE EVENT DATE: 201611
